FAERS Safety Report 4774869-5 (Version None)
Quarter: 2005Q3

REPORT INFORMATION
  Report Type: 
  Country: None (occurrence: None)
  Receive Date: 20050919
  Receipt Date: 20050907
  Transmission Date: 20060218
  Serious: Yes (Other)
  Sender: FDA-Public Use
  Company Number: 2005125435

PATIENT
  Age: 21 Year
  Sex: Male

DRUGS (6)
  1. NEURONTIN [Suspect]
     Indication: LEARNING DISORDER
  2. NEURONTIN [Suspect]
     Indication: MAJOR DEPRESSION
  3. ZOLOFT [Suspect]
     Indication: LEARNING DISORDER
  4. ZOLOFT [Suspect]
     Indication: MAJOR DEPRESSION
  5. GEODON [Suspect]
     Indication: LEARNING DISORDER
  6. GEODON [Suspect]
     Indication: MAJOR DEPRESSION

REACTIONS (10)
  - ASTHENIA [None]
  - CEREBROVASCULAR ACCIDENT [None]
  - DRUG DOSE OMISSION [None]
  - DYSARTHRIA [None]
  - FACIAL PALSY [None]
  - HEADACHE [None]
  - HYPOAESTHESIA [None]
  - MIGRAINE [None]
  - PARAESTHESIA [None]
  - SWELLING [None]
